FAERS Safety Report 6916473-6 (Version None)
Quarter: 2010Q3

REPORT INFORMATION
  Report Type: 
  Country: None (occurrence: None)
  Receive Date: 20100810
  Receipt Date: 20100802
  Transmission Date: 20110219
  Serious: Yes (Other)
  Sender: FDA-Public Use
  Company Number: PHHY2010BR51626

PATIENT
  Sex: Female

DRUGS (7)
  1. FORASEQ [Suspect]
     Indication: DYSPNOEA
     Dosage: UNK
  2. PURAN T4 [Concomitant]
     Indication: HYPOTHYROIDISM
     Dosage: 75 MG, 1 TABLET, DAILY
     Route: 048
  3. OMEPRAZOLE [Concomitant]
     Dosage: 1 CAPSULE DAILY
  4. ALPRAZOLAM [Concomitant]
     Indication: SLEEP DISORDER
     Dosage: 1 MG, 1 TABLET DAILY
     Route: 048
  5. XALATAN [Concomitant]
     Indication: GLAUCOMA
     Dosage: 1 DROP IN EACH EYE
  6. ARADOIS H [Concomitant]
  7. CITALOPRAM HYDROBROMIDE [Concomitant]
     Dosage: 20 MG, UNK

REACTIONS (4)
  - BLINDNESS [None]
  - RETINAL ARTERY EMBOLISM [None]
  - THROMBOSIS [None]
  - VISUAL IMPAIRMENT [None]
